FAERS Safety Report 18306889 (Version 1)
Quarter: 2020Q3

REPORT INFORMATION
  Report Type: Spontaneous
  Country: US (occurrence: US)
  Receive Date: 20200923
  Receipt Date: 20200923
  Transmission Date: 20201103
  Serious: No
  Sender: FDA-Public Use
  Company Number: None

PATIENT
  Age: 77 Year
  Sex: Male

DRUGS (1)
  1. WARFARIN (WARFARIN NA (EXELAN) 5MG TAB) [Suspect]
     Active Substance: WARFARIN SODIUM
     Indication: ATRIAL FIBRILLATION
     Route: 048

REACTIONS (11)
  - Gastrointestinal haemorrhage [None]
  - Gastric ulcer [None]
  - Diarrhoea [None]
  - Diverticulum intestinal haemorrhagic [None]
  - Duodenal ulcer [None]
  - Haemorrhage [None]
  - Anticoagulation drug level above therapeutic [None]
  - Hypotension [None]
  - Neoplasm malignant [None]
  - Inflammatory bowel disease [None]
  - Polyp [None]

NARRATIVE: CASE EVENT DATE: 20191019
